FAERS Safety Report 4400749-0 (Version None)
Quarter: 2004Q3

REPORT INFORMATION
  Report Type: 
  Country: None (occurrence: None)
  Receive Date: 20040714
  Receipt Date: 20040708
  Transmission Date: 20050211
  Serious: Yes (Hospitalization)
  Sender: FDA-Public Use
  Company Number: RB-794-2004

PATIENT
  Age: 42 Year
  Sex: Male

DRUGS (4)
  1. BUPRENORPHINE HYDROCHLORIDE [Suspect]
     Indication: DRUG DETOXIFICATION
     Dosage: 8 MG, SL
     Route: 060
  2. . [Concomitant]
     Dosage: PO
     Route: 048
  3. BROMAZEPAM [Suspect]
     Dosage: 500 MG, PO
     Route: 048
  4. CLORAZEPATE DIPOTASSIUM [Suspect]

REACTIONS (2)
  - HALLUCINATION [None]
  - HYPOREFLEXIA [None]
